FAERS Safety Report 10016764 (Version 1)
Quarter: 2014Q1

REPORT INFORMATION
  Report Type: Spontaneous
  Country: FR (occurrence: FR)
  Receive Date: 20140318
  Receipt Date: 20140318
  Transmission Date: 20141002
  Serious: Yes (Hospitalization)
  Sender: FDA-Public Use
  Company Number: PHHY2014FR031064

PATIENT
  Age: 1 Year
  Sex: Female
  Weight: 10.63 kg

DRUGS (2)
  1. EXJADE [Suspect]
     Indication: THALASSAEMIA BETA
     Dosage: 125 MG, UNK
     Route: 048
     Dates: start: 20130329, end: 20130528
  2. EXJADE [Suspect]
     Indication: OFF LABEL USE
     Dosage: 125 MG, DAILY
     Dates: start: 20130627

REACTIONS (2)
  - Cell death [Recovered/Resolved]
  - Drug administered to patient of inappropriate age [Unknown]
